FAERS Safety Report 11449176 (Version 1)
Quarter: 2015Q3

REPORT INFORMATION
  Report Type: Spontaneous
  Country: US (occurrence: US)
  Receive Date: 20150902
  Receipt Date: 20150902
  Transmission Date: 20151125
  Serious: Yes (Hospitalization, Other)
  Sender: FDA-Public Use
  Company Number: US-GLAXOSMITHKLINE-US2015GSK126028

PATIENT
  Age: 88 Year
  Sex: Male

DRUGS (1)
  1. VOTRIENT [Suspect]
     Active Substance: PAZOPANIB HYDROCHLORIDE
     Indication: PRODUCT USED FOR UNKNOWN INDICATION
     Dosage: 200 MG, BID
     Route: 048
     Dates: start: 20150701, end: 20150816

REACTIONS (4)
  - Gout [Unknown]
  - Hypertension [Unknown]
  - Large intestinal haemorrhage [Unknown]
  - Dehydration [Unknown]

NARRATIVE: CASE EVENT DATE: 20150816
